FAERS Safety Report 4910771-3 (Version None)
Quarter: 2006Q1

REPORT INFORMATION
  Report Type: 
  Country: None (occurrence: None)
  Receive Date: 20060209
  Receipt Date: 20060209
  Transmission Date: 20060701
  Serious: Yes (Hospitalization, Other)
  Sender: FDA-Public Use
  Company Number: None

PATIENT
  Sex: Male
  Weight: 70.8 kg

DRUGS (12)
  1. CYCLOPHOSPHAMIDE [Suspect]
     Indication: DIFFUSE LARGE B-CELL LYMPHOMA
     Dosage: 719 MG
     Dates: end: 20051127
  2. DOXORUBICIN HCL [Suspect]
     Dosage: 76 MG
     Dates: end: 20051127
  3. ETOPOSIDE [Suspect]
     Dosage: 384 MG
     Dates: end: 20051127
  4. G-CSF (FILGRASTIM, AMGEN) [Suspect]
     Dosage: 2400 MCG
     Dates: end: 20051206
  5. PREDNISONE [Suspect]
     Dosage: 575 MG
     Dates: end: 20051127
  6. VINCRISTINE SULFATE [Suspect]
     Dosage: 3.08 MG
     Dates: start: 20051127
  7. ALLOPURINOL [Concomitant]
  8. BACTRIM DS [Concomitant]
  9. DILAUDID [Concomitant]
  10. KALETRA [Concomitant]
  11. PREVACID [Concomitant]
  12. TRUVADA [Concomitant]

REACTIONS (2)
  - ABDOMINAL PAIN [None]
  - CONSTIPATION [None]
